FAERS Safety Report 8959053 (Version 2)
Quarter: 2012Q4

REPORT INFORMATION
  Report Type: 
  Country: US (occurrence: US)
  Receive Date: 20121212
  Receipt Date: 20121228
  Transmission Date: 20130627
  Serious: Yes (Hospitalization, Disabling, Other)
  Sender: FDA-Public Use
  Company Number: PHEH2012US024343

PATIENT
  Age: 60 None
  Sex: Female
  Weight: 58.5 kg

DRUGS (9)
  1. GILENYA [Suspect]
     Indication: MULTIPLE SCLEROSIS
     Dosage: 0.5 mg, daily
     Route: 048
     Dates: start: 201110
  2. LYRICA [Concomitant]
     Indication: CONVULSION
     Dosage: 75 mg, BID
     Route: 048
  3. VALIUM [Concomitant]
     Dosage: UNK UKN, UNK
     Route: 048
  4. AMPYRA [Concomitant]
     Dosage: UNK UKN, UNK
     Route: 048
  5. BACLOFEN [Concomitant]
     Dosage: UNK UKN, UNK
     Route: 048
  6. KEPPRA [Concomitant]
     Dosage: UNK UKN, UNK
     Route: 048
  7. IBUPROFEN [Concomitant]
     Dosage: UNK UKN, UNK
     Route: 048
  8. NEURONTIN [Concomitant]
     Dosage: UNK UKN, UNK
  9. PERCOCET [Concomitant]

REACTIONS (11)
  - Disorientation [Not Recovered/Not Resolved]
  - Convulsion [Recovered/Resolved]
  - Amnesia [Unknown]
  - Confusional state [Unknown]
  - Asthenia [Unknown]
  - Irritability [Unknown]
  - Sleep disorder [Unknown]
  - Nausea [Unknown]
  - Depression [Unknown]
  - Dizziness [Unknown]
  - Paraesthesia [Unknown]
